FAERS Safety Report 22531177 (Version 1)
Quarter: 2023Q2

REPORT INFORMATION
  Report Type: Spontaneous
  Country: KR (occurrence: KR)
  Receive Date: 20230607
  Receipt Date: 20230607
  Transmission Date: 20230721
  Serious: Yes (Death, Life-Threatening, Hospitalization)
  Sender: FDA-Public Use
  Company Number: KR-ORGANON-O2306KOR000098

PATIENT
  Age: 81 Year
  Sex: Female
  Weight: 50 kg

DRUGS (21)
  1. COZAAR [Suspect]
     Active Substance: LOSARTAN POTASSIUM
     Dosage: UNK, QD
     Route: 048
     Dates: start: 20190324
  2. ATORVASTATIN\EZETIMIBE [Concomitant]
     Active Substance: ATORVASTATIN\EZETIMIBE
     Dosage: UNK, QD
     Route: 048
     Dates: start: 20190217
  3. EZETIMIBE\SIMVASTATIN [Concomitant]
     Active Substance: EZETIMIBE\SIMVASTATIN
     Dosage: UNK
     Route: 048
     Dates: start: 20190102
  4. TELMISARTAN AND AMLODIPINE [Concomitant]
     Active Substance: AMLODIPINE BESYLATE\TELMISARTAN
     Dosage: UNK
     Route: 048
     Dates: start: 20190102
  5. BISOPROLOL FUMARATE [Concomitant]
     Active Substance: BISOPROLOL FUMARATE
     Dosage: UNK
     Route: 048
     Dates: start: 20190211
  6. FUROSEMIDE [Concomitant]
     Active Substance: FUROSEMIDE
     Dosage: UNK, ROUTE REPORTED AS VEIN
     Dates: start: 20190211, end: 20190215
  7. FUROSEMIDE [Concomitant]
     Active Substance: FUROSEMIDE
     Dosage: UNK
     Dates: start: 20190324, end: 20190328
  8. FUROSEMIDE [Concomitant]
     Active Substance: FUROSEMIDE
     Dosage: 40 MILLIGRAM, QD
     Route: 048
     Dates: start: 20190325
  9. FUROSEMIDE [Concomitant]
     Active Substance: FUROSEMIDE
     Dosage: UNK,ROUTE REPORTED AS VEIN
     Dates: start: 20191122, end: 20191124
  10. DIGOXIN [Concomitant]
     Active Substance: DIGOXIN
     Dosage: UNK, ROUTE REPORTED AS VEIN
     Dates: start: 20190211, end: 20190212
  11. DIGOXIN [Concomitant]
     Active Substance: DIGOXIN
     Dosage: UNK, QD
     Route: 048
     Dates: start: 20190422, end: 20191123
  12. ACETYLCYSTEINE [Concomitant]
     Active Substance: ACETYLCYSTEINE
     Dosage: UNK
     Dates: start: 20190324, end: 20190324
  13. CLOPIDOGREL BISULFATE [Concomitant]
     Active Substance: CLOPIDOGREL BISULFATE
     Dosage: UNK, QD
     Route: 048
     Dates: start: 20190214
  14. CLOPIDOGREL BISULFATE [Concomitant]
     Active Substance: CLOPIDOGREL BISULFATE
     Dosage: UNK
     Route: 048
     Dates: start: 20190924, end: 20191124
  15. SPIRONOLACTONE [Concomitant]
     Active Substance: SPIRONOLACTONE
     Dosage: UNK
     Route: 048
     Dates: start: 20190621
  16. ATENOLOL [Concomitant]
     Active Substance: ATENOLOL
     Dosage: UNK
     Route: 048
     Dates: start: 20190823
  17. CELECOXIB [Concomitant]
     Active Substance: CELECOXIB
     Dosage: UNK
     Route: 048
     Dates: start: 20190920, end: 20190923
  18. ACETAMINOPHEN\TRAMADOL HYDROCHLORIDE [Concomitant]
     Active Substance: ACETAMINOPHEN\TRAMADOL HYDROCHLORIDE
     Dosage: UNK
     Route: 048
     Dates: start: 20190920, end: 20190923
  19. POLAPREZINC [Concomitant]
     Active Substance: POLAPREZINC
     Dosage: UNK
     Route: 048
     Dates: start: 20190920, end: 20190923
  20. DULOXETINE HYDROCHLORIDE [Concomitant]
     Active Substance: DULOXETINE HYDROCHLORIDE
     Dosage: UNK
     Dates: start: 20190920
  21. CALCIUM POLYSTYRENE SULFONATE [Concomitant]
     Active Substance: CALCIUM POLYSTYRENE SULFONATE
     Dosage: UNK
     Route: 048
     Dates: start: 20191122, end: 20191124

REACTIONS (6)
  - Cardiac failure [Fatal]
  - Cardiac failure [Fatal]
  - Cardiac failure [Fatal]
  - Pelvic fracture [Fatal]
  - Cardiac failure [Fatal]
  - Cardiac failure [Fatal]

NARRATIVE: CASE EVENT DATE: 20190324
